FAERS Safety Report 6342822-6 (Version None)
Quarter: 2009Q3

REPORT INFORMATION
  Report Type: 
  Country: None (occurrence: None)
  Receive Date: 20090908
  Receipt Date: 20080831
  Transmission Date: 20100115
  Serious: Yes (Other)
  Sender: FDA-Public Use
  Company Number: US-JNJFOC-20090902043

PATIENT

DRUGS (1)
  1. RISPERDAL [Suspect]
     Indication: BIPOLAR I DISORDER
     Route: 065

REACTIONS (2)
  - AMMONIA INCREASED [None]
  - HEPATIC CIRRHOSIS [None]
